FAERS Safety Report 15642812 (Version 2)
Quarter: 2018Q4

REPORT INFORMATION
  Report Type: Spontaneous
  Country: US (occurrence: US)
  Receive Date: 20181121
  Receipt Date: 20181127
  Transmission Date: 20190205
  Serious: Yes (Other)
  Sender: FDA-Public Use
  Company Number: US-STRIDES ARCOLAB LIMITED-2018SP009842

PATIENT
  Age: 42 Year
  Sex: Male

DRUGS (27)
  1. LORAZEPAM. [Suspect]
     Active Substance: LORAZEPAM
     Indication: SEROTONIN SYNDROME
     Dosage: 2 MG, UNKNOWN (INCREMENTAL DOSES)
     Route: 042
  2. TRIGONELLA FOENUM-GRAECUM [Concomitant]
     Active Substance: FENUGREEK LEAF\HERBALS
     Indication: DEPRESSION
     Dosage: UNK
     Route: 065
  3. CYPROHEPTADINE. [Suspect]
     Active Substance: CYPROHEPTADINE
     Dosage: 4 MG, EVERY 8 HOURS
     Route: 065
  4. FENTANYL. [Concomitant]
     Active Substance: FENTANYL
     Indication: INDUCTION OF ANAESTHESIA
     Dosage: 1000 MCG, UNKNOWN
     Route: 065
  5. VASOPRESSIN. [Concomitant]
     Active Substance: VASOPRESSIN
     Indication: VASODILATATION
     Dosage: HIGH DOSES
     Route: 065
  6. NOREPINEPHRINE. [Concomitant]
     Active Substance: NOREPINEPHRINE
     Indication: VASODILATATION
     Dosage: HIGH DOSES
     Route: 065
  7. HOLY BASIL [Concomitant]
     Indication: DEPRESSION
     Dosage: UNK
     Route: 065
  8. PAROXETINE. [Concomitant]
     Active Substance: PAROXETINE
     Indication: DEPRESSION
     Dosage: 40 MG DAILY UNK
     Route: 048
  9. PAROXETINE. [Concomitant]
     Active Substance: PAROXETINE
     Indication: ANXIETY
  10. VASOPRESSIN. [Concomitant]
     Active Substance: VASOPRESSIN
     Indication: HYPOTENSION
  11. METOPROLOL. [Concomitant]
     Active Substance: METOPROLOL
     Indication: ATRIAL FIBRILLATION
     Dosage: 12.5 MG, BID
     Route: 048
  12. METOPROLOL. [Concomitant]
     Active Substance: METOPROLOL
     Dosage: 75 MG, QID
  13. PHENYLEPHRINE [Concomitant]
     Active Substance: PHENYLEPHRINE\PHENYLEPHRINE HYDROCHLORIDE
     Indication: PRODUCT USED FOR UNKNOWN INDICATION
     Dosage: UNK
     Route: 065
  14. TRIGONELLA FOENUM-GRAECUM [Concomitant]
     Active Substance: FENUGREEK LEAF\HERBALS
     Indication: ANXIETY
  15. CYPROHEPTADINE. [Suspect]
     Active Substance: CYPROHEPTADINE
     Indication: SEROTONIN SYNDROME
     Dosage: 12 MG (LOADING DOSE) UNKNOWN
     Route: 065
  16. HOLY BASIL [Concomitant]
     Indication: ANXIETY
  17. ENOXAPARIN [Concomitant]
     Active Substance: ENOXAPARIN
     Indication: PRODUCT USED FOR UNKNOWN INDICATION
     Dosage: 40 MG DAILY
  18. GINSENG KOREA [Concomitant]
     Indication: DEPRESSION
     Dosage: UNK
     Route: 065
  19. LORAZEPAM. [Suspect]
     Active Substance: LORAZEPAM
     Dosage: 16 MG, UNKNOWN
     Route: 042
  20. LORAZEPAM. [Suspect]
     Active Substance: LORAZEPAM
     Dosage: UNK
     Route: 042
  21. GINSENG KOREA [Concomitant]
     Indication: ANXIETY
  22. BUPROPION. [Concomitant]
     Active Substance: BUPROPION
     Indication: ATTENTION DEFICIT/HYPERACTIVITY DISORDER
     Dosage: 75 MG DAILY
     Route: 065
  23. CYPROHEPTADINE. [Suspect]
     Active Substance: CYPROHEPTADINE
     Dosage: 2 MG, EVERY 2 HRS (MAINTENANCE DOSE)
     Route: 065
  24. CYPROHEPTADINE. [Suspect]
     Active Substance: CYPROHEPTADINE
     Dosage: 6 MG, EVERY 8 HOURS (DOSE TAPERED)
     Route: 065
  25. LISDEXAMFETAMINE [Concomitant]
     Active Substance: LISDEXAMFETAMINE
     Indication: ATTENTION DEFICIT/HYPERACTIVITY DISORDER
     Dosage: 20 MG DAILY
     Route: 065
  26. NOREPINEPHRINE. [Concomitant]
     Active Substance: NOREPINEPHRINE
     Indication: HYPOTENSION
  27. METHYLTHIONINIUM CHLORIDE [Concomitant]
     Active Substance: METHYLENE BLUE
     Indication: HYPOTENSION
     Dosage: 70 MG, UNKNOWN
     Route: 065

REACTIONS (8)
  - Confusional state [Recovered/Resolved]
  - Disorientation [Recovered/Resolved]
  - Off label use [Unknown]
  - Amnesia [Recovered/Resolved]
  - Nightmare [Recovered/Resolved]
  - Delirium [Recovered/Resolved]
  - Mental status changes [Recovered/Resolved]
  - Consciousness fluctuating [Recovered/Resolved]
